FAERS Safety Report 9520421 (Version 3)
Quarter: 2013Q4

REPORT INFORMATION
  Report Type: Report from Study
  Country: DE (occurrence: DE)
  Receive Date: 20130912
  Receipt Date: 20131127
  Transmission Date: 20140711
  Serious: Yes (Other)
  Sender: FDA-Public Use
  Company Number: PHHY2013DE097477

PATIENT
  Sex: 0

DRUGS (7)
  1. SOM230 [Suspect]
     Indication: PITUITARY-DEPENDENT CUSHING^S SYNDROME
  2. LEVOTHYROXINE SODIUM [Concomitant]
  3. VENLAFAXINE [Concomitant]
  4. QUETIAPINE FUMARATE [Concomitant]
  5. AMILORIDE [Concomitant]
  6. FUROSEMIDE [Concomitant]
  7. COLECALCIFEROL [Concomitant]

REACTIONS (2)
  - Hyperglycaemia [Unknown]
  - Blood insulin decreased [Unknown]
